FAERS Safety Report 18604675 (Version 1)
Quarter: 2020Q4

REPORT INFORMATION
  Report Type: Spontaneous
  Country: SE (occurrence: SE)
  Receive Date: 20201211
  Receipt Date: 20201211
  Transmission Date: 20210114
  Serious: Yes (Other)
  Sender: FDA-Public Use
  Company Number: SE-ACCORD-210786

PATIENT
  Age: 80 Year
  Sex: Female

DRUGS (6)
  1. RAMIPRIL. [Suspect]
     Active Substance: RAMIPRIL
     Indication: CARDIAC FAILURE
     Route: 048
     Dates: start: 20161019
  2. FURIX (FUROSEMIDE) [Suspect]
     Active Substance: FUROSEMIDE
     Indication: CARDIAC FAILURE
     Dosage: 0.5 X 1, STRENGTH: 40 MG
     Route: 048
     Dates: start: 20161019
  3. RIVAROXABAN [Concomitant]
     Active Substance: RIVAROXABAN
     Dates: start: 20170704
  4. BISOPROLOL [Concomitant]
     Active Substance: BISOPROLOL
     Dosage: TOTAL DOSAGE 12.5 MG
     Dates: start: 20161019
  5. ALVEDON [Concomitant]
     Active Substance: ACETAMINOPHEN
     Dosage: 1 V B, MAXIMUM 6 / DAY
     Dates: start: 20150416
  6. BISOPROLOL [Concomitant]
     Active Substance: BISOPROLOL
     Dosage: TOTAL DOSAGE 12.5 MG
     Dates: start: 20161019

REACTIONS (2)
  - Inappropriate antidiuretic hormone secretion [Not Recovered/Not Resolved]
  - Hyponatraemia [Not Recovered/Not Resolved]

NARRATIVE: CASE EVENT DATE: 20170113
